FAERS Safety Report 9894797 (Version 3)
Quarter: 2014Q2

REPORT INFORMATION
  Report Type: Spontaneous
  Country: US (occurrence: US)
  Receive Date: 20140213
  Receipt Date: 20140515
  Transmission Date: 20141212
  Serious: Yes (Hospitalization)
  Sender: FDA-Public Use
  Company Number: US-ACTELION-A-NJ2013-93132

PATIENT
  Age: 66 Year
  Sex: Female

DRUGS (2)
  1. VELETRI [Suspect]
     Indication: PULMONARY ARTERIAL HYPERTENSION
     Dosage: 22 NG/KG, PER MIN
     Route: 042
     Dates: start: 20130604
  2. VELETRI [Suspect]
     Dosage: 23.29 NG/KG, PER MIN
     Route: 041
     Dates: start: 20130704

REACTIONS (2)
  - Cardiac disorder [Unknown]
  - Cardiac failure congestive [Unknown]
